FAERS Safety Report 14113339 (Version 1)
Quarter: 2017Q4

REPORT INFORMATION
  Report Type: Spontaneous
  Country: US (occurrence: US)
  Receive Date: 20171021
  Receipt Date: 20171021
  Transmission Date: 20180321
  Serious: Yes (Disabling)
  Sender: FDA-Public Use
  Company Number: None

PATIENT
  Age: 27 Year
  Sex: Female
  Weight: 60.3 kg

DRUGS (1)
  1. CEPHALEXIN. [Suspect]
     Active Substance: CEPHALEXIN
     Indication: SKIN INFECTION
     Dosage: ?          QUANTITY:20 CAPSULE(S);?
     Route: 048

REACTIONS (4)
  - Diarrhoea [None]
  - Rash [None]
  - Nasopharyngitis [None]
  - Hot flush [None]

NARRATIVE: CASE EVENT DATE: 20171018
